FAERS Safety Report 16198742 (Version 2)
Quarter: 2019Q2

REPORT INFORMATION
  Report Type: Spontaneous
  Country: IT (occurrence: IT)
  Receive Date: 20190415
  Receipt Date: 20190422
  Transmission Date: 20190711
  Serious: Yes (Other)
  Sender: FDA-Public Use
  Company Number: IT-BRACCO-2019IT01790

PATIENT
  Age: 86 Year
  Sex: Male

DRUGS (1)
  1. IOPAMIRO [Suspect]
     Active Substance: IOPAMIDOL
     Indication: COMPUTERISED TOMOGRAM ABDOMEN
     Dosage: 50 ML, SINGLE
     Route: 042
     Dates: start: 20190325, end: 20190325

REACTIONS (2)
  - Infusion site extravasation [Unknown]
  - Vein rupture [Unknown]

NARRATIVE: CASE EVENT DATE: 20190325
